FAERS Safety Report 9859597 (Version 1)
Quarter: 2014Q1

REPORT INFORMATION
  Report Type: Spontaneous
  Country: US (occurrence: US)
  Receive Date: 20140131
  Receipt Date: 20140131
  Transmission Date: 20141002
  Serious: Yes (Other)
  Sender: FDA-Public Use
  Company Number: US-TEVA-459530USA

PATIENT
  Sex: Male

DRUGS (6)
  1. CLONAZEPAM [Suspect]
     Route: 064
  2. FLUOXETINE [Suspect]
     Route: 064
  3. PAROXETINE [Suspect]
     Route: 064
  4. PAROXETINE [Suspect]
     Route: 064
  5. QUETIAPINE FUMARATE [Suspect]
     Route: 064
  6. LAMOTRIGINE [Concomitant]
     Route: 064

REACTIONS (3)
  - Hypoxia [Recovered/Resolved]
  - Foetal disorder [Recovered/Resolved]
  - Foetal exposure during pregnancy [Recovered/Resolved]
